FAERS Safety Report 19734288 (Version 3)
Quarter: 2021Q3

REPORT INFORMATION
  Report Type: Spontaneous
  Country: RU (occurrence: RU)
  Receive Date: 20210824
  Receipt Date: 20210924
  Transmission Date: 20211014
  Serious: Yes (Other)
  Sender: FDA-Public Use
  Company Number: RU-LUPIN PHARMACEUTICALS INC.-2021-16007

PATIENT
  Sex: Male
  Weight: 2.74 kg

DRUGS (27)
  1. FAMOTIDINE. [Suspect]
     Active Substance: FAMOTIDINE
     Indication: STEVENS-JOHNSON SYNDROME
     Dosage: 20 MILLIGRAM
     Route: 064
     Dates: start: 2019
  2. PREDNISOLONE. [Suspect]
     Active Substance: PREDNISOLONE
     Dosage: 250 TO 500MG
     Route: 064
     Dates: start: 2019
  3. LEVOMEKOL [Suspect]
     Active Substance: CHLORAMPHENICOL\6-METHYLURACIL
     Indication: STEVENS-JOHNSON SYNDROME
     Dosage: UNK
     Route: 064
     Dates: start: 2019
  4. METHYLENE BLUE. [Suspect]
     Active Substance: METHYLENE BLUE
     Indication: PRODUCT USED FOR UNKNOWN INDICATION
     Dosage: UNK
     Route: 064
     Dates: start: 2019
  5. METHYLPREDNISOLONE. [Suspect]
     Active Substance: METHYLPREDNISOLONE
     Dosage: 125 MILLIGRAM
     Route: 064
     Dates: start: 2019
  6. HYDROGEN PEROXIDE. [Suspect]
     Active Substance: HYDROGEN PEROXIDE
     Indication: STEVENS-JOHNSON SYNDROME
     Dosage: UNK
     Route: 064
     Dates: start: 2019
  7. DEXAMETHASONE. [Suspect]
     Active Substance: DEXAMETHASONE
     Indication: STEVENS-JOHNSON SYNDROME
     Dosage: 8 MILLIGRAM
     Route: 064
     Dates: start: 2019
  8. HYDROXYCHLOROQUINE [Suspect]
     Active Substance: HYDROXYCHLOROQUINE
     Dosage: UNK (INCREASED UP TO 2 TABLETS)
     Route: 064
     Dates: start: 20191109
  9. FLUOCINOLONE ACETONIDE. [Suspect]
     Active Substance: FLUOCINOLONE ACETONIDE
     Indication: STEVENS-JOHNSON SYNDROME
     Dosage: UNK
     Route: 064
     Dates: start: 2019
  10. AZITHROMYCIN ANHYDROUS. [Suspect]
     Active Substance: AZITHROMYCIN ANHYDROUS
     Indication: STEVENS-JOHNSON SYNDROME
     Dosage: 500 MILLIGRAM (STRENGTH 2 PERCET)
     Route: 064
     Dates: start: 2019
  11. METHYLPREDNISOLONE. [Suspect]
     Active Substance: METHYLPREDNISOLONE
     Indication: ARTHRITIS REACTIVE
     Dosage: 250 MILLIGRAM
     Route: 064
     Dates: start: 2019
  12. ERYTHROMYCIN. [Suspect]
     Active Substance: ERYTHROMYCIN
     Indication: STEVENS-JOHNSON SYNDROME
     Dosage: UNK (OINTMENT)
     Route: 064
     Dates: start: 2019
  13. SODIUM SULFATE [Suspect]
     Active Substance: SODIUM SULFATE
     Indication: STEVENS-JOHNSON SYNDROME
     Dosage: UNK
     Route: 064
     Dates: start: 2019
  14. OMEPRAZOLE. [Suspect]
     Active Substance: OMEPRAZOLE
     Indication: ARTHRITIS REACTIVE
     Dosage: 20 MILLIGRAM
     Route: 064
     Dates: start: 20191106
  15. HYDROCORTISONE. [Suspect]
     Active Substance: HYDROCORTISONE
     Indication: STEVENS-JOHNSON SYNDROME
     Dosage: UNK (OINTMENT)
     Route: 064
     Dates: start: 2019
  16. CHLOROPYRAMINE [Suspect]
     Active Substance: CHLOROPYRAMINE
     Indication: STEVENS-JOHNSON SYNDROME
     Dosage: 1 MILLILITER AT NIGHT
     Route: 064
     Dates: start: 2019
  17. AKRIDERM GENTA [BETAMETHASONE DIPROPIONATE/GENTAMICIN SULFATE] [Suspect]
     Active Substance: BETAMETHASONE DIPROPIONATE\GENTAMICIN SULFATE
     Indication: LOCAL ANAESTHESIA
     Dosage: 0.5 (UNIT UNKNOWN) PER DAY (CREAM)
     Route: 064
     Dates: start: 2019
  18. HYDROXYCHLOROQUINE [Suspect]
     Active Substance: HYDROXYCHLOROQUINE
     Indication: ARTHRITIS REACTIVE
     Dosage: 200 MILLIGRAM
     Route: 064
     Dates: start: 2019
  19. PREDNISOLONE. [Suspect]
     Active Substance: PREDNISOLONE
     Indication: ARTHRITIS REACTIVE
     Dosage: 60 MILLIGRAM, SINGLE
     Route: 064
     Dates: start: 2019
  20. DEXAMETHASONE. [Suspect]
     Active Substance: DEXAMETHASONE
     Dosage: 6 DOSAGE FORM (0.5 MG TABLET), QD
     Route: 064
     Dates: start: 2019
  21. BYSTRUMGEL [Suspect]
     Active Substance: KETOPROFEN
     Indication: PRODUCT USED FOR UNKNOWN INDICATION
     Dosage: UNK
     Route: 064
     Dates: start: 2019
  22. MARCAINE [Suspect]
     Active Substance: BUPIVACAINE HYDROCHLORIDE
     Indication: SPINAL ANAESTHESIA
     Dosage: 15 MILLIGRAM
     Route: 064
     Dates: start: 2019
  23. PREDNISOLONE. [Suspect]
     Active Substance: PREDNISOLONE
     Dosage: INCREASED UP TO 5 TABLETS (5 MG) A DAY
     Route: 064
     Dates: start: 2019
  24. CEFTRIAXONE. [Suspect]
     Active Substance: CEFTRIAXONE
     Indication: STEVENS-JOHNSON SYNDROME
     Dosage: UNK (FOR 5?7 DAYS, 0.5 PER DAY)
     Route: 064
     Dates: start: 2019
  25. PREDNISOLONE. [Suspect]
     Active Substance: PREDNISOLONE
     Dosage: 2 DOSAGE FORM, BID (5 MG TABLET)
     Route: 064
     Dates: start: 2019
  26. ALBUCID [Suspect]
     Active Substance: SULFACETAMIDE SODIUM
     Indication: STEVENS-JOHNSON SYNDROME
     Dosage: 0.25 (UNIT UNKNOWN) PER DAY
     Route: 064
     Dates: start: 2019
  27. DERMATOL [BISMUTH SUBGALLATE] [Suspect]
     Active Substance: BISMUTH SUBGALLATE
     Indication: LOCAL ANAESTHESIA
     Dosage: UNK
     Route: 064
     Dates: start: 2019

REACTIONS (2)
  - Foetal exposure during pregnancy [Unknown]
  - Premature baby [Unknown]

NARRATIVE: CASE EVENT DATE: 2019
